FAERS Safety Report 12690612 (Version 2)
Quarter: 2016Q3

REPORT INFORMATION
  Report Type: Report from Study
  Country: CA (occurrence: CA)
  Receive Date: 20160826
  Receipt Date: 20160912
  Transmission Date: 20161109
  Serious: Yes (Hospitalization, Other)
  Sender: FDA-Public Use
  Company Number: CA-ABBVIE-16P-028-1706934-00

PATIENT
  Age: 54 Year
  Sex: Female
  Weight: 122 kg

DRUGS (1)
  1. HUMIRA [Suspect]
     Active Substance: ADALIMUMAB
     Indication: CROHN^S DISEASE
     Route: 058
     Dates: start: 20150331

REACTIONS (8)
  - Intestinal obstruction [Not Recovered/Not Resolved]
  - Incisional hernia [Unknown]
  - Intestinal obstruction [Recovered/Resolved]
  - Abdominal adhesions [Recovered/Resolved]
  - Intestinal dilatation [Unknown]
  - Diarrhoea [Not Recovered/Not Resolved]
  - Volvulus [Not Recovered/Not Resolved]
  - Gastrointestinal wall thickening [Unknown]

NARRATIVE: CASE EVENT DATE: 20160803
